FAERS Safety Report 9079607 (Version 1)
Quarter: 2013Q1

REPORT INFORMATION
  Report Type: Spontaneous
  Country: BR (occurrence: BR)
  Receive Date: 20130130
  Receipt Date: 20130130
  Transmission Date: 20140127
  Serious: Yes (Hospitalization)
  Sender: FDA-Public Use
  Company Number: BR-ASTRAZENECA-2013SE04689

PATIENT
  Age: 890 Month
  Sex: Male

DRUGS (1)
  1. SYMBICORT TURBUHALER [Suspect]
     Indication: CHRONIC OBSTRUCTIVE PULMONARY DISEASE
     Dosage: 320/9 MCG UNKNOWN
     Route: 055
     Dates: start: 2005, end: 201301

REACTIONS (1)
  - Laryngeal papilloma [Recovered/Resolved]
